FAERS Safety Report 25334416 (Version 1)
Quarter: 2025Q2

REPORT INFORMATION
  Report Type: Spontaneous
  Country: US (occurrence: US)
  Receive Date: 20250520
  Receipt Date: 20250520
  Transmission Date: 20250717
  Serious: No
  Sender: AZURITY PHARMACEUTICALS
  Company Number: US-AZURITY PHARMACEUTICALS, INC.-AZR202501-000451

PATIENT
  Age: 34 Year
  Sex: Male

DRUGS (1)
  1. TESTOSTERONE CYPIONATE [Suspect]
     Active Substance: TESTOSTERONE CYPIONATE
     Indication: Blood testosterone decreased
     Dosage: 0.2 MILLILITER, THREE TIMES A WEEK
     Route: 065
     Dates: start: 20250116

REACTIONS (7)
  - Injection site bruising [Unknown]
  - Injection site mass [Unknown]
  - Injection site reaction [Unknown]
  - Product with quality issue administered [Unknown]
  - Multiple use of single-use product [Unknown]
  - Liquid product physical issue [Unknown]
  - Product deposit [Unknown]

NARRATIVE: CASE EVENT DATE: 20250101
